FAERS Safety Report 5003667-2 (Version None)
Quarter: 2006Q1

REPORT INFORMATION
  Report Type: 
  Country: None (occurrence: None)
  Receive Date: 20060317
  Receipt Date: 20060215
  Transmission Date: 20060701
  Serious: Yes (Other)
  Sender: FDA-Public Use
  Company Number: US-JNJFOC-20060203861

PATIENT
  Sex: Female

DRUGS (1)
  1. ORTHO EVRA [Suspect]
     Indication: DRUG USE FOR UNKNOWN INDICATION
     Dosage: TRANSDERMAL
     Route: 062

REACTIONS (1)
  - CEREBROVASCULAR ACCIDENT [None]
